FAERS Safety Report 7679410-5 (Version None)
Quarter: 2011Q3

REPORT INFORMATION
  Report Type: 
  Country: None (occurrence: None)
  Receive Date: 20110812
  Receipt Date: 20110801
  Transmission Date: 20111222
  Serious: Yes (Hospitalization)
  Sender: FDA-Public Use
  Company Number: US-JNJFOC-20110308237

PATIENT
  Sex: Female

DRUGS (2)
  1. REMICADE [Suspect]
     Route: 042
     Dates: start: 20080310
  2. REMICADE [Suspect]
     Indication: CROHN'S DISEASE
     Dosage: TOTAL 13 DOSES
     Route: 042
     Dates: start: 20091019

REACTIONS (5)
  - ABDOMINAL PAIN [None]
  - MALNUTRITION [None]
  - HAEMORRHAGE [None]
  - WEIGHT DECREASED [None]
  - DIARRHOEA [None]
